FAERS Safety Report 10227759 (Version 1)
Quarter: 2014Q2

REPORT INFORMATION
  Report Type: Spontaneous
  Country: US (occurrence: None)
  Receive Date: 20140606
  Receipt Date: 20140606
  Transmission Date: 20141212
  Serious: Yes (Other)
  Sender: FDA-Public Use
  Company Number: UNT-2014-001335

PATIENT
  Age: 51 Year
  Sex: Female

DRUGS (3)
  1. TYVASO [Suspect]
     Indication: COR PULMONALE CHRONIC
     Route: 055
     Dates: start: 20120508
  2. TRACLEER (BOSENTAN) [Concomitant]
  3. ADCIRCA (TADALAFIL) [Concomitant]

REACTIONS (1)
  - Cataract [None]
